FAERS Safety Report 5102274-0 (Version None)
Quarter: 2006Q3

REPORT INFORMATION
  Report Type: 
  Country: None (occurrence: None)
  Receive Date: 20060912
  Receipt Date: 20060726
  Transmission Date: 20061208
  Serious: Yes (Hospitalization, Other)
  Sender: FDA-Public Use
  Company Number: US-AMGEN-US187668

PATIENT
  Sex: Female

DRUGS (10)
  1. ENBREL [Suspect]
     Indication: PSORIASIS
     Dates: start: 20040801, end: 20050601
  2. FOSAMAX [Concomitant]
  3. HYDROCHLOROTHIAZIDE [Concomitant]
  4. TIMOLOL MALEATE [Concomitant]
  5. TRIAMTERENE [Concomitant]
  6. TYLENOL [Concomitant]
  7. NITROGLYCERIN [Concomitant]
  8. THYROID TAB [Concomitant]
  9. NITROFURANTOIN [Concomitant]
  10. FENTANYL [Concomitant]

REACTIONS (24)
  - ACUTE MYOCARDIAL INFARCTION [None]
  - ANAEMIA [None]
  - ARTHRITIS [None]
  - ATELECTASIS [None]
  - ATRIAL FIBRILLATION [None]
  - ATRIAL FLUTTER [None]
  - CARDIOMEGALY [None]
  - CELLULITIS [None]
  - CONDITION AGGRAVATED [None]
  - DEHYDRATION [None]
  - DIARRHOEA [None]
  - HYPOTENSION [None]
  - LEUKOCYTOSIS [None]
  - LUNG INFILTRATION [None]
  - NECROTISING FASCIITIS STREPTOCOCCAL [None]
  - PULMONARY OEDEMA [None]
  - RENAL FAILURE ACUTE [None]
  - SEPSIS [None]
  - SKIN GRAFT [None]
  - SKIN HAEMORRHAGE [None]
  - STAPHYLOCOCCAL INFECTION [None]
  - SYNCOPE [None]
  - TACHYCARDIA [None]
  - URINARY TRACT INFECTION [None]
